FAERS Safety Report 7171068-7 (Version None)
Quarter: 2010Q4

REPORT INFORMATION
  Report Type: 
  Country: None (occurrence: None)
  Receive Date: 20101217
  Receipt Date: 20101214
  Transmission Date: 20110411
  Serious: Yes (Death)
  Sender: FDA-Public Use
  Company Number: ES-PFIZER INC-2010172169

PATIENT
  Age: 87 Year
  Sex: Male

DRUGS (4)
  1. AZITHROMYCIN [Suspect]
     Indication: PNEUMONIA
     Dosage: 500 MG, 1X/DAY
     Route: 042
     Dates: start: 20090421, end: 20090423
  2. CEFTRIAXONE [Concomitant]
     Indication: PNEUMONIA
     Dosage: 1 G, 1X/DAY
     Route: 042
     Dates: start: 20090419, end: 20090420
  3. AMOXICILINA + CLAVULANICO [Concomitant]
     Indication: PNEUMONIA
     Dosage: UNK
     Route: 042
     Dates: start: 20090421, end: 20090425
  4. ACENOCUMAROL [Concomitant]
     Indication: ARRHYTHMIA
     Route: 048

REACTIONS (1)
  - DEATH [None]
